FAERS Safety Report 20167523 (Version 5)
Quarter: 2022Q1

REPORT INFORMATION
  Report Type: Report from Study
  Country: IT (occurrence: IT)
  Receive Date: 20211209
  Receipt Date: 20220311
  Transmission Date: 20220423
  Serious: Yes (Life-Threatening, Hospitalization)
  Sender: FDA-Public Use
  Company Number: IT-BAXTER-2021BAX017741

PATIENT
  Age: 16 Year
  Sex: Female
  Weight: 43.5 kg

DRUGS (7)
  1. IFOSFAMIDE [Suspect]
     Active Substance: IFOSFAMIDE
     Indication: Osteosarcoma recurrent
     Dosage: DAY 1-3 OF EVERY 21 DAY CYCLE
     Route: 042
     Dates: start: 20210601, end: 20210603
  2. IFOSFAMIDE [Suspect]
     Active Substance: IFOSFAMIDE
     Route: 042
     Dates: start: 20210628, end: 20210630
  3. ETOPOSIDE [Suspect]
     Active Substance: ETOPOSIDE
     Indication: Osteosarcoma recurrent
     Dosage: DAY 1-3 OF EVERY 21 DAY CYCLE
     Route: 042
     Dates: start: 20210601, end: 20210603
  4. ETOPOSIDE [Suspect]
     Active Substance: ETOPOSIDE
     Dosage: (100 MG/M2,1 D) ROUTE: INTRAVENOUS INFUSION
     Dates: start: 20210628, end: 20210630
  5. LENVATINIB [Suspect]
     Active Substance: LENVATINIB
     Indication: Osteosarcoma recurrent
     Dosage: DOSE FURTHER SPECIFIED AS 14 MG/M2
     Route: 048
     Dates: start: 20210601, end: 20210630
  6. LENVATINIB [Suspect]
     Active Substance: LENVATINIB
     Route: 048
     Dates: start: 20210709, end: 20210818
  7. LENVATINIB [Suspect]
     Active Substance: LENVATINIB
     Dosage: DOSE REINTRODUCED
     Route: 048
     Dates: start: 20211015, end: 20211217

REACTIONS (7)
  - Gallbladder obstruction [Recovered/Resolved]
  - Posterior reversible encephalopathy syndrome [Recovered/Resolved]
  - Respiratory failure [Recovered/Resolved]
  - Hypokalaemia [Recovered/Resolved]
  - Platelet count decreased [Recovered/Resolved]
  - Febrile neutropenia [Recovered/Resolved]
  - Deep vein thrombosis [Recovered/Resolved with Sequelae]

NARRATIVE: CASE EVENT DATE: 20210608
